FAERS Safety Report 8512465-4 (Version None)
Quarter: 2012Q3

REPORT INFORMATION
  Report Type: 
  Country: None (occurrence: None)
  Receive Date: 20120716
  Receipt Date: 20120709
  Transmission Date: 20120928
  Serious: Yes (Hospitalization)
  Sender: FDA-Public Use
  Company Number: US-GLAXOSMITHKLINE-A0761164A

PATIENT
  Age: 54 Year
  Sex: Male
  Weight: 127.3 kg

DRUGS (18)
  1. AVANDIA [Suspect]
     Indication: DIABETES MELLITUS
     Dosage: 2MG TWICE PER DAY
     Route: 048
     Dates: start: 20060626, end: 20070101
  2. IMDUR [Concomitant]
  3. LISINOPRIL [Concomitant]
  4. ATENOLOL [Concomitant]
  5. PRAVACHOL [Concomitant]
  6. ALLOPURINOL [Concomitant]
  7. XANAX [Concomitant]
  8. ALTACE [Concomitant]
  9. ASPIRIN [Concomitant]
  10. FUROSEMIDE [Concomitant]
  11. EPLERENONE [Concomitant]
  12. PREVACID [Concomitant]
  13. COREG [Concomitant]
  14. LYRICA [Concomitant]
  15. FEXOFENADINE [Concomitant]
  16. ALBUTEROL [Concomitant]
  17. LEVOTHYROXINE SODIUM [Concomitant]
  18. KLOR-CON [Concomitant]

REACTIONS (2)
  - MYOCARDIAL INFARCTION [None]
  - HEART INJURY [None]
